FAERS Safety Report 8594597-8 (Version None)
Quarter: 2012Q2

REPORT INFORMATION
  Report Type: 
  Country: None (occurrence: None)
  Receive Date: 20120423
  Receipt Date: 20100122
  Transmission Date: 20120825
  Serious: Yes (Disabling, Other)
  Sender: FDA-Public Use
  Company Number: PHEH2009US16318

PATIENT
  Age: 82 Year
  Sex: Female

DRUGS (1)
  1. EXJADE [Suspect]
     Indication: HAEMOCHROMATOSIS
     Dosage: 1000 MG, QD, ORAL 500 MG, QD, ORAL
     Route: 048
     Dates: start: 20090601, end: 20091101

REACTIONS (1)
  - DEAFNESS [None]
